FAERS Safety Report 15158333 (Version 1)
Quarter: 2018Q3

REPORT INFORMATION
  Report Type: Spontaneous
  Country: CZ (occurrence: CZ)
  Receive Date: 20180718
  Receipt Date: 20180718
  Transmission Date: 20181010
  Serious: Yes (Other)
  Sender: FDA-Public Use
  Company Number: CZ-ASTELLAS-2018US031794

PATIENT
  Age: 61 Year
  Sex: Female

DRUGS (10)
  1. PREDNISONE. [Suspect]
     Active Substance: PREDNISONE
     Indication: LIVER TRANSPLANT
     Dosage: UNK UNK, UNKNOWN FREQ.
     Route: 065
  2. HUMULIN R [Concomitant]
     Active Substance: INSULIN HUMAN
     Indication: TYPE 2 DIABETES MELLITUS
     Dosage: UNK UNK, UNKNOWN FREQ.
     Route: 065
  3. LEVEMIR [Concomitant]
     Active Substance: INSULIN DETEMIR
     Dosage: 20 UNITS, UNKNOWN FREQ.
     Route: 065
  4. PREDNISONE. [Suspect]
     Active Substance: PREDNISONE
     Route: 065
  5. LEVEMIR [Concomitant]
     Active Substance: INSULIN DETEMIR
     Indication: TYPE 2 DIABETES MELLITUS
     Dosage: UNK UNK, UNKNOWN FREQ.
     Route: 065
  6. TACROLIMUS. [Suspect]
     Active Substance: TACROLIMUS
     Indication: LIVER TRANSPLANT
     Dosage: UNK UNK, UNKNOWN FREQ.
     Route: 065
  7. LEVEMIR [Concomitant]
     Active Substance: INSULIN DETEMIR
     Dosage: 16 UNITS IN THE MORNING
     Route: 065
  8. LISPRO INSULIN [Concomitant]
     Active Substance: INSULIN LISPRO
     Indication: TYPE 2 DIABETES MELLITUS
     Dosage: 100 U/ML (IL 100) AT 20?20?20 U DOSES
     Route: 065
     Dates: end: 201711
  9. HUMULIN R [Concomitant]
     Active Substance: INSULIN HUMAN
     Dosage: 16?16?16 IU DOSES, UNKNOWN FREQ.
     Route: 065
  10. LISPRO INSULIN [Concomitant]
     Active Substance: INSULIN LISPRO
     Dosage: (IL 200) 24?24?24 U, UNKNOWN FREQ.UNK
     Route: 065
     Dates: start: 201711

REACTIONS (7)
  - Toxicity to various agents [Unknown]
  - Nephrotic syndrome [Unknown]
  - Hypoglycaemia [Unknown]
  - Increased insulin requirement [Unknown]
  - Liver transplant rejection [Unknown]
  - Weight increased [Unknown]
  - Renal failure [Unknown]
